FAERS Safety Report 17985927 (Version 2)
Quarter: 2020Q3

REPORT INFORMATION
  Report Type: Report from Study
  Country: US (occurrence: US)
  Receive Date: 20200707
  Receipt Date: 20200820
  Transmission Date: 20201103
  Serious: Yes (Hospitalization, Other)
  Sender: FDA-Public Use
  Company Number: US-AMGEN-USASP2020105656

PATIENT
  Age: 74 Year
  Sex: Male

DRUGS (1)
  1. REPATHA [Suspect]
     Active Substance: EVOLOCUMAB
     Indication: HYPERLIPIDAEMIA
     Dosage: 420 MILLIGRAM, QMO
     Route: 065
     Dates: start: 2018

REACTIONS (6)
  - Pulmonary thrombosis [Unknown]
  - Abdominal abscess [Unknown]
  - Weight decreased [Unknown]
  - Gallbladder rupture [Unknown]
  - Hepatobiliary procedural complication [Unknown]
  - Thrombosis [Unknown]
